FAERS Safety Report 9124569 (Version 1)
Quarter: 2013Q1

REPORT INFORMATION
  Report Type: Spontaneous
  Country: US (occurrence: US)
  Receive Date: 20130227
  Receipt Date: 20130227
  Transmission Date: 20140127
  Serious: No
  Sender: FDA-Public Use
  Company Number: US-TEVA-388762USA

PATIENT
  Sex: Male

DRUGS (4)
  1. NUVIGIL [Suspect]
     Indication: SOMNOLENCE
     Dosage: 150 MILLIGRAM DAILY;
     Route: 048
  2. UNKNOWN CHOLESTEROL MEDICATION [Concomitant]
     Indication: BLOOD CHOLESTEROL
  3. UNKNOWN ANTI-INFLAMMATORY [Concomitant]
  4. CLARITIN-D [Concomitant]
     Indication: HYPERSENSITIVITY

REACTIONS (1)
  - Rash [Not Recovered/Not Resolved]
